FAERS Safety Report 13641930 (Version 1)
Quarter: 2017Q2

REPORT INFORMATION
  Report Type: Spontaneous
  Country: US (occurrence: US)
  Receive Date: 20170609
  Receipt Date: 20170609
  Transmission Date: 20170830
  Serious: Yes (Hospitalization)
  Sender: FDA-Public Use
  Company Number: None

PATIENT
  Age: 68 Year
  Sex: Male
  Weight: 101 kg

DRUGS (2)
  1. ERTAPENEM [Suspect]
     Active Substance: ERTAPENEM
     Indication: INFECTION
     Route: 042
     Dates: start: 20170331, end: 20170417
  2. ERTAPENEM [Suspect]
     Active Substance: ERTAPENEM
     Indication: BLADDER MASS
     Route: 042
     Dates: start: 20170331, end: 20170417

REACTIONS (5)
  - Pyrexia [None]
  - Leukocytosis [None]
  - Metabolic encephalopathy [None]
  - Toxic encephalopathy [None]
  - Mental status changes [None]

NARRATIVE: CASE EVENT DATE: 20170417
